FAERS Safety Report 8895197 (Version 1)
Quarter: 2012Q4

REPORT INFORMATION
  Report Type: 
  Country: US (occurrence: US)
  Receive Date: 20121107
  Receipt Date: 20121107
  Transmission Date: 20130627
  Serious: No
  Sender: FDA-Public Use
  Company Number: US-AMGEN-USASP2011056438

PATIENT
  Age: 70 Year
  Sex: Female

DRUGS (14)
  1. ENBREL [Suspect]
     Indication: PRODUCT USED FOR UNKNOWN INDICATION
     Dosage: 50 mg, qwk
  2. LISINOPRIL [Concomitant]
     Dosage: 10 mg, UNK
  3. LANTUS                             /01483501/ [Concomitant]
     Dosage: UNK
  4. NOVOLOG [Concomitant]
     Dosage: UNK
  5. METFORMIN [Concomitant]
     Dosage: 1000 mg, UNK
  6. LYRICA [Concomitant]
     Dosage: 100 mg, UNK
  7. LASIX                              /00032601/ [Concomitant]
     Dosage: 40 mg, UNK
  8. FELODIPINE [Concomitant]
     Dosage: 10 mg, UNK
  9. VITAMIN B [Concomitant]
     Dosage: UNK
  10. VITAMIN C                          /00008001/ [Concomitant]
     Dosage: 1000 mg, UNK
  11. VITAMIN D /00107901/ [Concomitant]
     Dosage: 1000 IU, UNK
  12. TYLENOL /00020001/ [Concomitant]
     Dosage: 325 mg, UNK
  13. ALLEGRA [Concomitant]
     Dosage: 60 mg, UNK
  14. PREVACID [Concomitant]
     Dosage: 15 mg, UNK

REACTIONS (5)
  - Injection site urticaria [Unknown]
  - Injection site reaction [Unknown]
  - Injection site swelling [Unknown]
  - Injection site erythema [Unknown]
  - Injection site pruritus [Unknown]
